FAERS Safety Report 5794911-2 (Version None)
Quarter: 2008Q2

REPORT INFORMATION
  Report Type: 
  Country: None (occurrence: None)
  Receive Date: 20080626
  Receipt Date: 20080616
  Transmission Date: 20081010
  Serious: Yes (Hospitalization)
  Sender: FDA-Public Use
  Company Number: E2090-00487-SPO-JP

PATIENT
  Age: 71 Year
  Sex: Female

DRUGS (3)
  1. ZONISAMIDE [Suspect]
     Indication: TRIGEMINAL NEURALGIA
     Dosage: 300 MG, 3 IN 1 D, ORAL
     Route: 048
     Dates: start: 20080527, end: 20080612
  2. AMITRIPTYLINE HCL [Concomitant]
  3. HALCION [Concomitant]

REACTIONS (7)
  - CANDIDIASIS [None]
  - CONDITION AGGRAVATED [None]
  - NEUTROPHIL COUNT DECREASED [None]
  - PLATELET COUNT DECREASED [None]
  - STOMATITIS [None]
  - STREPTOCOCCAL INFECTION [None]
  - WHITE BLOOD CELL COUNT DECREASED [None]
